FAERS Safety Report 6285585-5 (Version None)
Quarter: 2009Q3

REPORT INFORMATION
  Report Type: 
  Country: None (occurrence: None)
  Receive Date: 20090727
  Receipt Date: 20090721
  Transmission Date: 20100115
  Serious: Yes (Life-Threatening)
  Sender: FDA-Public Use
  Company Number: US-GENENTECH-284491

PATIENT
  Sex: Female
  Weight: 97.052 kg

DRUGS (12)
  1. XOLAIR [Suspect]
     Indication: ASTHMA
     Dosage: UNK
     Route: 058
     Dates: start: 20090305
  2. NEXIUM [Concomitant]
     Indication: DRUG USE FOR UNKNOWN INDICATION
     Dosage: 40 MG, UNK
     Route: 048
  3. ESTRACE [Concomitant]
     Indication: DRUG USE FOR UNKNOWN INDICATION
     Dosage: 5 MG, UNK
     Route: 048
  4. ADVAIR HFA [Concomitant]
     Indication: ASTHMA
     Dosage: 1 PUFF, BID
     Route: 048
  5. SPIRIVA [Concomitant]
     Indication: ASTHMA
     Dosage: 1 UNK, QD
     Route: 048
  6. ZYFLO [Concomitant]
     Indication: ASTHMA
     Dosage: 600 MG, BID
     Route: 048
     Dates: start: 20080101
  7. XOPENEX [Concomitant]
     Indication: ASTHMA
     Dosage: UNK
     Route: 055
  8. NASONEX [Concomitant]
     Indication: HYPERSENSITIVITY
     Dosage: 1 UNK, PRN
     Route: 045
     Dates: start: 20080101
  9. ALLERX DOSE PACK [Concomitant]
     Indication: HYPERSENSITIVITY
     Dosage: 1 TABLET, BID
     Route: 048
     Dates: start: 20080101
  10. MULTI-VITAMINS [Concomitant]
     Indication: DRUG USE FOR UNKNOWN INDICATION
  11. VITAMINS NOS [Concomitant]
     Indication: DRUG USE FOR UNKNOWN INDICATION
     Route: 048
  12. GARLIC VITAMINS [Concomitant]
     Indication: DRUG USE FOR UNKNOWN INDICATION

REACTIONS (4)
  - ERYTHEMA [None]
  - EYE PRURITUS [None]
  - SWOLLEN TONGUE [None]
  - THROAT TIGHTNESS [None]
